FAERS Safety Report 25011370 (Version 14)
Quarter: 2025Q4

REPORT INFORMATION
  Report Type: Report from Study
  Country: US (occurrence: US)
  Receive Date: 20250226
  Receipt Date: 20251219
  Transmission Date: 20260118
  Serious: Yes (Hospitalization, Other)
  Sender: TAKEDA
  Company Number: US-TAKEDA-2024TUS085528

PATIENT
  Age: 68 Year
  Sex: Female
  Weight: 51.7 kg

DRUGS (24)
  1. GLASSIA [Suspect]
     Active Substance: .ALPHA.1-PROTEINASE INHIBITOR HUMAN
     Indication: Alpha-1 antitrypsin deficiency
     Dosage: UNK UNK, 1/WEEK
     Dates: start: 20240806
  2. GLASSIA [Suspect]
     Active Substance: .ALPHA.1-PROTEINASE INHIBITOR HUMAN
     Dosage: UNK
  3. GLASSIA [Suspect]
     Active Substance: .ALPHA.1-PROTEINASE INHIBITOR HUMAN
     Dosage: 60 MILLIGRAM/KILOGRAM, 1/WEEK
  4. ALENDRONATE [Suspect]
     Active Substance: ALENDRONATE SODIUM
     Indication: Osteoporosis
     Dosage: UNK UNK, 1/WEEK
  5. EPINEPHRINE [Concomitant]
     Active Substance: EPINEPHRINE
     Dosage: UNK
  6. TYLENOL [Concomitant]
     Active Substance: ACETAMINOPHEN
     Dosage: UNK
  7. SODIUM CHLORIDE [Concomitant]
     Active Substance: SODIUM CHLORIDE
     Dosage: UNK
  8. DIPHENHYDRAMINE HYDROCHLORIDE [Concomitant]
     Active Substance: DIPHENHYDRAMINE HYDROCHLORIDE
     Dosage: UNK
  9. VITAMIN D3 [Concomitant]
     Active Substance: CHOLECALCIFEROL
     Dosage: UNK
  10. TRELEGY ELLIPTA [Concomitant]
     Active Substance: FLUTICASONE FUROATE\UMECLIDINIUM BROMIDE\VILANTEROL TRIFENATATE
     Dosage: UNK
  11. ALBUTEROL SULFATE [Concomitant]
     Active Substance: ALBUTEROL SULFATE
     Dosage: UNK
  12. ROSUVASTATIN CALCIUM [Concomitant]
     Active Substance: ROSUVASTATIN CALCIUM
     Dosage: UNK
  13. ASPIRIN [Concomitant]
     Active Substance: ASPIRIN
     Dosage: UNK
  14. COQ [Concomitant]
     Dosage: UNK
  15. COENZYME Q10 [Concomitant]
     Active Substance: DIETARY SUPPLEMENT\UBIDECARENONE
     Dosage: UNK
  16. PANTOPRAZOLE SODIUM [Concomitant]
     Active Substance: PANTOPRAZOLE SODIUM
     Dosage: UNK
  17. PROBIOTICS NOS [Concomitant]
     Active Substance: PROBIOTICS NOS
     Dosage: UNK
  18. METRONIDAZOLE [Concomitant]
     Active Substance: METRONIDAZOLE
     Dosage: UNK
  19. CIPROFLOXACIN HYDROCHLORIDE [Concomitant]
     Active Substance: CIPROFLOXACIN HYDROCHLORIDE
     Dosage: UNK
  20. HEPARIN [Concomitant]
     Active Substance: HEPARIN SODIUM
     Dosage: UNK
  21. MINOXIDIL [Concomitant]
     Active Substance: MINOXIDIL
  22. BENADRYL [Concomitant]
     Active Substance: DIPHENHYDRAMINE HYDROCHLORIDE
  23. MIRALAX [Concomitant]
     Active Substance: POLYETHYLENE GLYCOL 3350
     Dosage: UNK
  24. BIOTIN [Concomitant]
     Active Substance: BIOTIN

REACTIONS (33)
  - Abscess intestinal [Unknown]
  - Nosocomial infection [Unknown]
  - Weight decreased [Unknown]
  - White blood cell count abnormal [Unknown]
  - Pulmonary sarcoidosis [Unknown]
  - White blood cell count increased [Unknown]
  - Small intestinal perforation [Unknown]
  - Decreased appetite [Unknown]
  - Diverticulitis intestinal perforated [Unknown]
  - Intestinal perforation [Unknown]
  - Mucosal discolouration [Unknown]
  - Cystitis [Unknown]
  - Product dose omission issue [Unknown]
  - Osteoporosis [Unknown]
  - Post procedural infection [Unknown]
  - Pyrexia [Unknown]
  - Mite allergy [Unknown]
  - Eye pruritus [Unknown]
  - Productive cough [Unknown]
  - Poor venous access [Unknown]
  - Sensitivity to weather change [Unknown]
  - Seasonal allergy [Unknown]
  - Chills [Unknown]
  - Chest discomfort [Unknown]
  - Feeling abnormal [Unknown]
  - Vomiting [Unknown]
  - Rhinorrhoea [Unknown]
  - Rash [Unknown]
  - Fatigue [Unknown]
  - Cough [Unknown]
  - Sinusitis [Unknown]
  - Urinary tract infection [Unknown]
  - Dyspnoea [Unknown]

NARRATIVE: CASE EVENT DATE: 20240818
